FAERS Safety Report 20245236 (Version 2)
Quarter: 2023Q4

REPORT INFORMATION
  Report Type: Spontaneous
  Country: US (occurrence: US)
  Receive Date: 20211229
  Receipt Date: 20231027
  Transmission Date: 20240110
  Serious: No
  Sender: FDA-Public Use
  Company Number: US-AVEO ONCOLOGY-2021-AVEO-US003699

PATIENT

DRUGS (14)
  1. FOTIVDA [Suspect]
     Active Substance: TIVOZANIB HYDROCHLORIDE
     Indication: Renal cell carcinoma
     Dosage: 1.34 MG, DAILY, 1CAPSULE FOR 21 DAYS, 7 DAYS OFF
     Route: 048
     Dates: start: 20211112
  2. BASAGLAR [Concomitant]
     Active Substance: INSULIN GLARGINE
  3. Gelclair [Concomitant]
  4. GEMFIBROZIL [Concomitant]
     Active Substance: GEMFIBROZIL
  5. HYDROCORTISONE [Concomitant]
     Active Substance: HYDROCORTISONE
  6. LEXAPRO [Concomitant]
     Active Substance: ESCITALOPRAM OXALATE
  7. LOMOTIL [Concomitant]
     Active Substance: ATROPINE SULFATE\DIPHENOXYLATE HYDROCHLORIDE
  8. LOSARTAN POTASSIUM [Concomitant]
     Active Substance: LOSARTAN POTASSIUM
  9. NOVOLOG [Concomitant]
     Active Substance: INSULIN ASPART
  10. OMEPRAZOLE [Concomitant]
     Active Substance: OMEPRAZOLE
  11. SUCRALFATE [Concomitant]
     Active Substance: SUCRALFATE
  12. ZOFRAN [Concomitant]
     Active Substance: ONDANSETRON HYDROCHLORIDE
  13. BIOTIN [Concomitant]
     Active Substance: BIOTIN
  14. COLLAGEN [Concomitant]
     Active Substance: COLLAGEN

REACTIONS (1)
  - Product dose omission issue [Unknown]

NARRATIVE: CASE EVENT DATE: 20211117
